FAERS Safety Report 4716775-8 (Version None)
Quarter: 2005Q3

REPORT INFORMATION
  Report Type: 
  Country: None (occurrence: None)
  Receive Date: 20050719
  Receipt Date: 20050712
  Transmission Date: 20060218
  Serious: Yes (Other)
  Sender: FDA-Public Use
  Company Number: 200512066JP

PATIENT
  Age: 77 Year
  Sex: Male

DRUGS (1)
  1. LASIX [Suspect]
     Route: 048

REACTIONS (1)
  - MYALGIA [None]
